FAERS Safety Report 17011533 (Version 2)
Quarter: 2019Q4

REPORT INFORMATION
  Report Type: Spontaneous
  Country: US (occurrence: US)
  Receive Date: 20191108
  Receipt Date: 20191115
  Transmission Date: 20200122
  Serious: No
  Sender: FDA-Public Use
  Company Number: US-NOVOPROD-685410

PATIENT
  Age: 35 Year
  Sex: Female

DRUGS (4)
  1. TRESIBA [Suspect]
     Active Substance: INSULIN DEGLUDEC
     Indication: LATENT AUTOIMMUNE DIABETES IN ADULTS
     Dosage: 262 UNITS DAILY
     Route: 058
     Dates: start: 2016
  2. OMNITROPE [Suspect]
     Active Substance: SOMATROPIN
     Indication: GROWTH HORMONE DEFICIENCY
     Dosage: ONCE DAILY DOSE
     Route: 065
  3. FIASP [Suspect]
     Active Substance: INSULIN ASPART
     Indication: LATENT AUTOIMMUNE DIABETES IN ADULTS
     Dosage: SLIDING SCALE
     Route: 058
     Dates: start: 2018
  4. OMNITROPE [Suspect]
     Active Substance: SOMATROPIN
     Dosage: DOSE DECREASED TO TWIC A WEEK DOSE
     Route: 065

REACTIONS (2)
  - Diabetes mellitus inadequate control [Recovering/Resolving]
  - Affective disorder [Recovering/Resolving]
